FAERS Safety Report 8383229-X (Version None)
Quarter: 2012Q1

REPORT INFORMATION
  Report Type: 
  Country: None (occurrence: None)
  Receive Date: 20120323
  Receipt Date: 20110510
  Transmission Date: 20120608
  Serious: Yes (Other)
  Sender: FDA-Public Use
  Company Number: 163-21880-11051319

PATIENT
  Age: 63 Year
  Sex: Male

DRUGS (9)
  1. OMEPRAZOLE [Concomitant]
  2. ACYCLOVIR [Concomitant]
  3. REVLIMID [Suspect]
     Indication: MULTIPLE MYELOMA
     Dosage: 25 MG, DAILY X 21/28 DAYS, PO 15 MG, DAILY X 21 /28 DAYS, PO
     Route: 048
     Dates: start: 20110101, end: 20110501
  4. REVLIMID [Suspect]
     Indication: MULTIPLE MYELOMA
     Dosage: 25 MG, DAILY X 21/28 DAYS, PO 15 MG, DAILY X 21 /28 DAYS, PO
     Route: 048
     Dates: start: 20110512
  5. METHYLIN (METHYLPHENDATE HYDROCHLORIDE) [Concomitant]
  6. LEVOTHROID [Concomitant]
  7. DEXAMETHASONE [Concomitant]
  8. SIMVASTATIN [Concomitant]
  9. PROAIR (FLUTICASONE PROPIONATE) [Concomitant]

REACTIONS (1)
  - NEUROPATHY PERIPHERAL [None]
